FAERS Safety Report 9376682 (Version 1)
Quarter: 2013Q2

REPORT INFORMATION
  Report Type: Spontaneous
  Country: US (occurrence: None)
  Receive Date: 20130628
  Receipt Date: 20130628
  Transmission Date: 20140414
  Serious: Yes (Life-Threatening, Hospitalization)
  Sender: FDA-Public Use
  Company Number: None

PATIENT
  Age: 47 Year
  Sex: Male
  Weight: 90.72 kg

DRUGS (1)
  1. FENTANYL [Suspect]
     Indication: PAIN
     Dosage: ONE PATCH EVERY 48 HOURS ID
     Route: 023
     Dates: start: 20110301, end: 20111210

REACTIONS (11)
  - Drug tolerance increased [None]
  - Drug withdrawal syndrome [None]
  - Tremor [None]
  - Hyperhidrosis [None]
  - Moaning [None]
  - Screaming [None]
  - Pain [None]
  - Fatigue [None]
  - Activities of daily living impaired [None]
  - Drug effect decreased [None]
  - Wrong technique in drug usage process [None]
